FAERS Safety Report 7823948-4 (Version None)
Quarter: 2011Q4

REPORT INFORMATION
  Report Type: 
  Country: None (occurrence: None)
  Receive Date: 20111018
  Receipt Date: 20111018
  Transmission Date: 20120403
  Serious: No
  Sender: FDA-Public Use
  Company Number: None

PATIENT
  Age: 69 Year
  Sex: Female

DRUGS (6)
  1. AREDIA [Concomitant]
  2. HYDROCHLOROTHIAZIDE [Concomitant]
  3. KLOR-CON [Concomitant]
  4. REVLIMID [Suspect]
     Indication: MULTIPLE MYELOMA
     Dosage: 10MG QDX21D/28D ORALLY (REV25MG X 1 YR; REV10MG X 2 YR)
     Route: 048
  5. CYANOCOBALAMIN [Concomitant]
  6. DECADRON [Concomitant]

REACTIONS (4)
  - DECREASED APPETITE [None]
  - NEUROPATHY PERIPHERAL [None]
  - MALNUTRITION [None]
  - FATIGUE [None]
